FAERS Safety Report 24818927 (Version 1)
Quarter: 2025Q1

REPORT INFORMATION
  Report Type: Spontaneous
  Country: US (occurrence: None)
  Receive Date: 20250108
  Receipt Date: 20250108
  Transmission Date: 20250408
  Serious: Yes (Hospitalization)
  Sender: FDA-CTU
  Company Number: None

PATIENT
  Sex: Male

DRUGS (3)
  1. SUNITINIB MALATE [Suspect]
     Active Substance: SUNITINIB MALATE
     Indication: Neuroendocrine tumour
     Dosage: 25MG ONCE DAILY BY MOUTH
     Route: 048
     Dates: start: 202410
  2. SUNITINIB MALATE [Suspect]
     Active Substance: SUNITINIB MALATE
     Indication: Metastases to liver
  3. SUTENT [Concomitant]
     Active Substance: SUNITINIB MALATE

REACTIONS (4)
  - Therapy cessation [None]
  - Epistaxis [None]
  - Blood glucose decreased [None]
  - Fall [None]
